FAERS Safety Report 6615751-8 (Version None)
Quarter: 2010Q1

REPORT INFORMATION
  Report Type: 
  Country: None (occurrence: None)
  Receive Date: 20100305
  Receipt Date: 20100224
  Transmission Date: 20100710
  Serious: Yes (Other)
  Sender: FDA-Public Use
  Company Number: US-SANOFI-AVENTIS-2010SA011436

PATIENT
  Age: 90 Year
  Sex: Female

DRUGS (1)
  1. AMBIEN [Suspect]
     Dosage: 5 MG WHEN SHE STARTED, THEN 10 MG BECAUSE SHE HAD SO MUCH TROUBLE SLEEPING
     Route: 048
     Dates: end: 20100201

REACTIONS (4)
  - CONTUSION [None]
  - DIZZINESS [None]
  - EYE HAEMORRHAGE [None]
  - FALL [None]
